FAERS Safety Report 7868460-1 (Version None)
Quarter: 2011Q4

REPORT INFORMATION
  Report Type: 
  Country: None (occurrence: None)
  Receive Date: 20111028
  Receipt Date: 20101213
  Transmission Date: 20120403
  Serious: No
  Sender: FDA-Public Use
  Company Number: US-AMGEN-USASP2010008934

PATIENT
  Age: 60 Year
  Sex: Female

DRUGS (8)
  1. ANSAID [Concomitant]
     Dosage: 100 MG, UNK
  2. RANITIDINE [Concomitant]
     Dosage: 75 MG, UNK
  3. ENBREL [Suspect]
     Indication: PRODUCT USED FOR UNKNOWN INDICATION
     Dosage: 50 MG, QWK
     Route: 058
  4. ASPIRIN [Concomitant]
     Dosage: 81 MG, UNK
  5. FISH OIL [Concomitant]
  6. VITAMIN D [Concomitant]
     Dosage: 1000 MG, UNK
  7. PREDNISONE [Concomitant]
     Dosage: 1 MG, UNK
  8. ARAVA [Concomitant]
     Dosage: 10 MG, UNK

REACTIONS (3)
  - DISCOMFORT [None]
  - VOMITING [None]
  - NAUSEA [None]
